FAERS Safety Report 5952763-1 (Version None)
Quarter: 2008Q4

REPORT INFORMATION
  Report Type: 
  Country: None (occurrence: None)
  Receive Date: 20081114
  Receipt Date: 20081110
  Transmission Date: 20090506
  Serious: Yes (Hospitalization)
  Sender: FDA-Public Use
  Company Number: US-B.I. PHARMACEUTICALS,INC./RIDGEFIELD-2008-BP-17017BP

PATIENT
  Age: 94 Year
  Sex: Male

DRUGS (1)
  1. AGGRENOX [Suspect]
     Dates: end: 20080101

REACTIONS (1)
  - GASTROINTESTINAL HAEMORRHAGE [None]
